FAERS Safety Report 22210557 (Version 1)
Quarter: 2023Q2

REPORT INFORMATION
  Report Type: Spontaneous
  Country: US (occurrence: None)
  Receive Date: 20230414
  Receipt Date: 20230414
  Transmission Date: 20230722
  Serious: Yes (Life-Threatening, Other)
  Sender: FDA-Public Use
  Company Number: US-ROCHE-3251630

PATIENT
  Sex: Female

DRUGS (1)
  1. OCREVUS [Suspect]
     Active Substance: OCRELIZUMAB
     Indication: Product used for unknown indication
     Route: 065

REACTIONS (6)
  - Immunodeficiency [Unknown]
  - Alopecia [Unknown]
  - Hypersensitivity [Unknown]
  - Loss of consciousness [Unknown]
  - Malaise [Unknown]
  - Onychomadesis [Unknown]
